FAERS Safety Report 17765869 (Version 1)
Quarter: 2020Q2

REPORT INFORMATION
  Report Type: Spontaneous
  Country: US (occurrence: US)
  Receive Date: 20200511
  Receipt Date: 20200511
  Transmission Date: 20200714
  Serious: Yes (Other)
  Sender: FDA-Public Use
  Company Number: US-AMNEAL PHARMACEUTICALS-2020-AMRX-01280

PATIENT
  Sex: Male

DRUGS (1)
  1. RYTARY [Suspect]
     Active Substance: CARBIDOPA\LEVODOPA
     Indication: PARKINSON^S DISEASE
     Dosage: 1,023 MG/4095 MG, DAILY
     Route: 065

REACTIONS (4)
  - Parkinson^s disease [Unknown]
  - Hypotension [Unknown]
  - Dizziness [Unknown]
  - Overdose [Unknown]
